FAERS Safety Report 4741112-2 (Version None)
Quarter: 2005Q3

REPORT INFORMATION
  Report Type: 
  Country: None (occurrence: None)
  Receive Date: 20050803
  Receipt Date: 20041110
  Transmission Date: 20060218
  Serious: Yes (Other)
  Sender: FDA-Public Use
  Company Number: 2004-11-1032

PATIENT
  Age: 62 Year
  Sex: Female

DRUGS (5)
  1. INTERFERON INJECTABLE [Suspect]
     Indication: METASTATIC MALIGNANT MELANOMA
     Dosage: QD IV;  TIW IM
     Route: 042
     Dates: end: 20040601
  2. INTERFERON INJECTABLE [Suspect]
     Indication: METASTATIC MALIGNANT MELANOMA
     Dosage: QD IV;  TIW IM
     Route: 042
  3. PROCRIT [Suspect]
     Indication: ANAEMIA OF MALIGNANT DISEASE
     Dosage: 40000 IU/WK SUBCUTANEOUS
     Route: 058
     Dates: start: 20040312
  4. IBUPROFEN [Concomitant]
  5. TYLENOL [Concomitant]

REACTIONS (6)
  - ASTHENIA [None]
  - DYSPNOEA [None]
  - HYPERTHYROIDISM [None]
  - PAIN [None]
  - PALPITATIONS [None]
  - WEIGHT DECREASED [None]
